FAERS Safety Report 9286747 (Version 1)
Quarter: 2013Q2

REPORT INFORMATION
  Report Type: Spontaneous
  Country: IR (occurrence: None)
  Receive Date: 20130509
  Receipt Date: 20130509
  Transmission Date: 20140414
  Serious: Yes (Other)
  Sender: FDA-Public Use
  Company Number: NSR_01128_2013

PATIENT
  Age: 20 Year
  Sex: Male

DRUGS (1)
  1. TRAMADOL (TRAMADOL) [Suspect]
     Indication: PRODUCT USED FOR UNKNOWN INDICATION
     Dosage: (3 G 1X, [NOT THE PRESCRIBED DOSE] ORAL)
     Route: 048

REACTIONS (2)
  - Toxicity to various agents [None]
  - Tongue injury [None]
